FAERS Safety Report 20432311 (Version 1)
Quarter: 2022Q1

REPORT INFORMATION
  Report Type: Spontaneous
  Country: US (occurrence: None)
  Receive Date: 20220204
  Receipt Date: 20220204
  Transmission Date: 20220424
  Serious: Yes (Hospitalization)
  Sender: FDA-Public Use
  Company Number: None

PATIENT
  Age: 55 Year
  Sex: Female

DRUGS (2)
  1. CASIRIVIMAB [Suspect]
     Active Substance: CASIRIVIMAB
     Indication: COVID-19
     Dosage: FREQUENCY : ONCE;?
     Route: 041
     Dates: start: 20211009, end: 20211009
  2. IMDEVIMAB [Suspect]
     Active Substance: IMDEVIMAB
     Indication: COVID-19
     Dosage: OTHER FREQUENCY : ONCE;?
     Route: 041
     Dates: start: 20211009, end: 20211009

REACTIONS (7)
  - Decreased appetite [None]
  - Failure to thrive [None]
  - Dehydration [None]
  - Hypophagia [None]
  - Acute kidney injury [None]
  - Urinary tract infection [None]
  - COVID-19 pneumonia [None]

NARRATIVE: CASE EVENT DATE: 20211013
